FAERS Safety Report 12656900 (Version 1)
Quarter: 2016Q3

REPORT INFORMATION
  Report Type: Spontaneous
  Country: US (occurrence: US)
  Receive Date: 20160816
  Receipt Date: 20160816
  Transmission Date: 20161109
  Serious: Yes (Other)
  Sender: FDA-Public Use
  Company Number: US-ASTRAZENECA-2016SE86296

PATIENT
  Age: 63 Year
  Sex: Female

DRUGS (1)
  1. BRILINTA [Suspect]
     Active Substance: TICAGRELOR
     Indication: MYOCARDIAL INFARCTION
     Route: 048
     Dates: start: 20151101, end: 20160301

REACTIONS (6)
  - Abasia [Recovered/Resolved]
  - Anaemia [Unknown]
  - Swelling [Recovered/Resolved]
  - Contusion [Unknown]
  - Dyspnoea [Recovered/Resolved]
  - Internal haemorrhage [Recovered/Resolved]
